FAERS Safety Report 5875895-5 (Version None)
Quarter: 2008Q3

REPORT INFORMATION
  Report Type: 
  Country: None (occurrence: None)
  Receive Date: 20080910
  Receipt Date: 20080812
  Transmission Date: 20090109
  Serious: Yes (Other)
  Sender: FDA-Public Use
  Company Number: PHHY2008GB20034

PATIENT
  Sex: Female

DRUGS (2)
  1. GLEEVEC [Suspect]
     Indication: CHRONIC MYELOID LEUKAEMIA
  2. MAXOLON [Concomitant]

REACTIONS (3)
  - BREAST DISORDER [None]
  - NAUSEA [None]
  - TREATMENT NONCOMPLIANCE [None]
